FAERS Safety Report 7487572-8 (Version None)
Quarter: 2011Q2

REPORT INFORMATION
  Report Type: 
  Country: None (occurrence: None)
  Receive Date: 20110518
  Receipt Date: 20110506
  Transmission Date: 20111010
  Serious: Yes (Hospitalization, Other)
  Sender: FDA-Public Use
  Company Number: US-AMGEN-USACT2011016590

PATIENT
  Age: 91 Year
  Sex: Male

DRUGS (19)
  1. VITAMIN C [Concomitant]
     Dosage: 500 MG, QD
  2. BLINDED DARBEPOETIN ALFA [Suspect]
     Indication: CARDIAC FAILURE
     Dosage: UNK UNK, QMO
     Dates: start: 20100204
  3. BISACODYL [Concomitant]
     Dosage: UNK UNK, PRN
  4. LOPRESSOR [Concomitant]
     Dosage: 37.5 UNK, UNK
     Route: 048
  5. NITROSTAT [Concomitant]
     Dosage: 0.4 MG, PRN
  6. ALLOPURINOL [Concomitant]
     Dosage: 50 MG, QD
     Route: 048
  7. HYDRALAZINE HCL [Concomitant]
     Dosage: 25 UNK, UNK
  8. ISOSORBIDE DINITRATE [Concomitant]
     Dosage: UNK UNK, TID
     Route: 048
  9. LASIX [Concomitant]
     Dosage: 40 UNK, UNK
     Route: 048
  10. PLACEBO [Suspect]
     Indication: CARDIAC FAILURE
     Dosage: UNK UNK, QMO
     Dates: start: 20100204
  11. CRESTOR [Concomitant]
     Dosage: 10 MG, QD
     Route: 048
  12. FERROUS GLUCONATE [Concomitant]
     Dosage: 324 MG, QD
     Route: 048
  13. VITAMIN E [Concomitant]
     Dosage: 400 MG, QD
     Route: 048
  14. ASPIRIN [Concomitant]
     Dosage: 81 MG, QD
     Route: 048
  15. LISINOPRIL [Concomitant]
     Dosage: 2.5 MG, QD
     Route: 048
  16. SENNA-S [Concomitant]
     Dosage: UNK UNK, QD
     Route: 048
  17. COUMADIN [Concomitant]
  18. TRAZODONE HCL [Concomitant]
     Dosage: 25 MG, QD
     Route: 048
  19. MIRALAX [Concomitant]
     Dosage: 17 MG, QD

REACTIONS (5)
  - CARDIAC FAILURE CONGESTIVE [None]
  - PLEURAL EFFUSION [None]
  - PNEUMONIA [None]
  - INTERNATIONAL NORMALISED RATIO INCREASED [None]
  - ACUTE RESPIRATORY FAILURE [None]
